FAERS Safety Report 8034245 (Version 2)
Quarter: 2012Q4

REPORT INFORMATION
  Report Type: 
  Country: US (occurrence: US)
  Receive Date: 20110714
  Receipt Date: 20121129
  Transmission Date: 20130627
  Serious: Yes (Other)
  Sender: FDA-Public Use
  Company Number: US-JNJFOC-20110703439

PATIENT
  Age: 27 Year
  Sex: Male

DRUGS (3)
  1. EXTRA STRENGTH TYLENOL [Suspect]
     Route: 048
  2. EXTRA STRENGTH TYLENOL [Suspect]
     Indication: TOOTHACHE
     Dosage: q 3 to 4 hours,3 to 4 tabs at one time,approx 10 grams per day for 4 days,last at am of 07-OCT-2008
     Route: 048
     Dates: start: 20081004, end: 20081007
  3. INSULIN [Concomitant]
     Indication: DIABETES MELLITUS
     Dosage: 70/30, 15 units, bid, last dose at 08:30
     Route: 065

REACTIONS (4)
  - Overdose [Unknown]
  - Liver injury [Unknown]
  - Alanine aminotransferase increased [None]
  - Aspartate aminotransferase increased [None]
